FAERS Safety Report 22163283 (Version 1)
Quarter: 2023Q2

REPORT INFORMATION
  Report Type: Spontaneous
  Country: HR (occurrence: HR)
  Receive Date: 20230401
  Receipt Date: 20230401
  Transmission Date: 20230722
  Serious: Yes (Other)
  Sender: FDA-Public Use
  Company Number: HR-009507513-2303HRV010383

PATIENT
  Age: 37 Year
  Sex: Male

DRUGS (3)
  1. KEYTRUDA [Suspect]
     Active Substance: PEMBROLIZUMAB
     Indication: Adenocarcinoma
     Dosage: UNK
     Dates: start: 2020
  2. PEMETREXED [Concomitant]
     Active Substance: PEMETREXED
     Dosage: UNK
     Dates: start: 2020
  3. CARBOPLATIN [Concomitant]
     Active Substance: CARBOPLATIN
     Dosage: UNK
     Dates: start: 2020

REACTIONS (7)
  - Malignant neoplasm progression [Unknown]
  - Malignant neoplasm progression [Unknown]
  - Hepatitis [Unknown]
  - Post procedural haemorrhage [Unknown]
  - Hepatic lesion [Unknown]
  - Lung opacity [Unknown]
  - Dyspnoea exertional [Unknown]

NARRATIVE: CASE EVENT DATE: 20210801
